FAERS Safety Report 21514582 (Version 1)
Quarter: 2022Q4

REPORT INFORMATION
  Report Type: Spontaneous
  Country: US (occurrence: US)
  Receive Date: 20221027
  Receipt Date: 20221027
  Transmission Date: 20230112
  Serious: No
  Sender: FDA-Public Use
  Company Number: US-SANOFI-01327628

PATIENT
  Age: 80 Year
  Sex: Male

DRUGS (2)
  1. LANTUS SOLOSTAR [Suspect]
     Active Substance: INSULIN GLARGINE
     Indication: Type 2 diabetes mellitus
     Dosage: 27 UNITS BID AND DRUG TREATMENT DURATION:NEW PENS
  2. OZEMPIC [Suspect]
     Active Substance: SEMAGLUTIDE
     Dosage: ONCE A WEEK SHOT OF 0.25 ML

REACTIONS (3)
  - Inappropriate schedule of product administration [Unknown]
  - Headache [Unknown]
  - Nausea [Unknown]
